FAERS Safety Report 8206864-8 (Version None)
Quarter: 2012Q1

REPORT INFORMATION
  Report Type: 
  Country: None (occurrence: None)
  Receive Date: 20120312
  Receipt Date: 20120229
  Transmission Date: 20120608
  Serious: Yes (Hospitalization)
  Sender: FDA-Public Use
  Company Number: UTC-015701

PATIENT
  Age: 67 Year
  Sex: Female
  Weight: 101.8 kg

DRUGS (12)
  1. ALDACTONE [Concomitant]
  2. FLOVENT [Concomitant]
  3. TRACLEER [Concomitant]
  4. REVATIO [Concomitant]
  5. WARFARIN SODIUM [Concomitant]
  6. FUROSEMIDE (FUROSEMIDE) [Concomitant]
  7. IPRATROPIUM (IPRATROPIUM) (INHALANT) [Concomitant]
  8. REMODULIN [Suspect]
     Indication: PULMONARY ARTERIAL HYPERTENSION
     Dosage: 2.5-7.5 NG/KG/MIN (1 IN 1 MIN), SUBCUTANEOUS
     Route: 058
     Dates: start: 20120120
  9. NEXIUM [Concomitant]
  10. DIGOXIN [Concomitant]
  11. FERROUS SULFATE TAB [Concomitant]
  12. CLARITIN [Concomitant]

REACTIONS (3)
  - CELLULITIS [None]
  - INTERNATIONAL NORMALISED RATIO INCREASED [None]
  - GOUT [None]
